FAERS Safety Report 18793547 (Version 2)
Quarter: 2021Q1

REPORT INFORMATION
  Report Type: Spontaneous
  Country: US (occurrence: US)
  Receive Date: 20210127
  Receipt Date: 20210202
  Transmission Date: 20210419
  Serious: Yes (Other)
  Sender: FDA-Public Use
  Company Number: US-PFIZER INC-2021051331

PATIENT
  Age: 90 Year
  Sex: Female
  Weight: 65.77 kg

DRUGS (1)
  1. EPINEPHRINE. [Suspect]
     Active Substance: EPINEPHRINE
     Dosage: UNK

REACTIONS (6)
  - Decreased appetite [Unknown]
  - Syncope [Unknown]
  - Contraindicated product administered [Unknown]
  - Presyncope [Unknown]
  - Nausea [Unknown]
  - Heart rate increased [Unknown]
